FAERS Safety Report 17877640 (Version 1)
Quarter: 2020Q2

REPORT INFORMATION
  Report Type: Spontaneous
  Country: FR (occurrence: FR)
  Receive Date: 20200609
  Receipt Date: 20200609
  Transmission Date: 20200714
  Serious: Yes (Other)
  Sender: FDA-Public Use
  Company Number: FR-PFIZER INC-2020220732

PATIENT
  Age: 25 Year
  Sex: Male

DRUGS (3)
  1. XANAX [Suspect]
     Active Substance: ALPRAZOLAM
     Indication: SPINAL MUSCULAR ATROPHY
     Dosage: UNK
     Route: 048
  2. VALIUM [Suspect]
     Active Substance: DIAZEPAM
     Indication: SPINAL MUSCULAR ATROPHY
     Dosage: UNK
     Route: 048
     Dates: start: 2002
  3. DAFALGAN CODEINE [Suspect]
     Active Substance: ACETAMINOPHEN\CODEINE PHOSPHATE
     Indication: PAIN
     Dosage: UNK
     Route: 048
     Dates: start: 201910

REACTIONS (3)
  - Off label use [Unknown]
  - Drug use disorder [Not Recovered/Not Resolved]
  - Product use in unapproved indication [Unknown]
